FAERS Safety Report 10462385 (Version 3)
Quarter: 2014Q4

REPORT INFORMATION
  Report Type: Spontaneous
  Country: PL (occurrence: PL)
  Receive Date: 20140918
  Receipt Date: 20141015
  Transmission Date: 20150528
  Serious: Yes (Disabling)
  Sender: FDA-Public Use
  Company Number: PL-TAKEDA-2014TJP012712

PATIENT
  Age: 64 Year
  Sex: Male
  Weight: 84 kg

DRUGS (3)
  1. BRINTELLIX [Suspect]
     Active Substance: VORTIOXETINE HYDROBROMIDE
     Indication: MOOD DISORDER DUE TO A GENERAL MEDICAL CONDITION
     Dosage: 5 MG, UNK
     Route: 048
     Dates: start: 20140820, end: 20140826
  2. WELLBUTRIN XL [Suspect]
     Active Substance: BUPROPION HYDROCHLORIDE
     Dosage: 150 MG, UNK
     Dates: end: 20140819
  3. TRITICCO CR [Concomitant]
     Dosage: 75 MG, UNK

REACTIONS (4)
  - Anxiety [Unknown]
  - Akathisia [Unknown]
  - Parkinson^s disease [None]
  - Product use issue [Recovered/Resolved]

NARRATIVE: CASE EVENT DATE: 20140819
